FAERS Safety Report 5214070-4 (Version None)
Quarter: 2007Q1

REPORT INFORMATION
  Report Type: 
  Country: None (occurrence: None)
  Receive Date: 20070122
  Receipt Date: 20070108
  Transmission Date: 20070707
  Serious: Yes (Hospitalization, Disabling, Other)
  Sender: FDA-Public Use
  Company Number: NO-PFIZER INC-2007002356

PATIENT
  Sex: Female

DRUGS (8)
  1. NEURONTIN [Suspect]
     Route: 048
  2. WARFARIN SODIUM [Interacting]
     Indication: ATRIAL FIBRILLATION
     Dosage: TEXT:2.5MG 3-4 TIMES PER DAY
     Route: 048
  3. MORFIN [Suspect]
     Route: 048
  4. LEVAXIN [Interacting]
     Route: 048
  5. TEGRETOL [Interacting]
     Route: 048
  6. VOLTAREN [Interacting]
     Route: 048
  7. SIMVASTATIN [Concomitant]
     Route: 048
  8. PARACET [Interacting]
     Route: 048

REACTIONS (3)
  - DRUG INTERACTION [None]
  - PARAPLEGIA [None]
  - SPINAL EPIDURAL HAEMORRHAGE [None]
